FAERS Safety Report 8849455 (Version 1)
Quarter: 2012Q4

REPORT INFORMATION
  Report Type: 
  Country: US (occurrence: US)
  Receive Date: 20121019
  Receipt Date: 20121019
  Transmission Date: 20130627
  Serious: No
  Sender: FDA-Public Use
  Company Number: US-PFIZER INC-2012258841

PATIENT
  Sex: Male

DRUGS (2)
  1. ADVIL [Suspect]
     Indication: RIB FRACTURE
     Dosage: 200 mg, daily
     Dates: start: 201210
  2. ADVIL [Suspect]
     Indication: PAIN

REACTIONS (5)
  - Fluid retention [Unknown]
  - Swelling [Unknown]
  - Drug ineffective [Unknown]
  - Musculoskeletal discomfort [Unknown]
  - Insomnia [Unknown]
